FAERS Safety Report 9149040 (Version 1)
Quarter: 2013Q1

REPORT INFORMATION
  Report Type: Spontaneous
  Country: US (occurrence: US)
  Receive Date: 20130308
  Receipt Date: 20130308
  Transmission Date: 20140127
  Serious: No
  Sender: FDA-Public Use
  Company Number: US-BAYER-2013-029165

PATIENT
  Age: 83 Year
  Sex: Female
  Weight: 70 kg

DRUGS (6)
  1. ALEVE CAPLET/TABLET,MIDOL EXTENDED RELIEF CAPLET [Suspect]
     Indication: ARTHRITIS
     Dosage: 2 DF, QD
     Route: 048
     Dates: start: 201301
  2. HYDROLZINE [Concomitant]
  3. BYSTOLIC [Concomitant]
  4. LOSARTAN [Concomitant]
  5. ONE-A-DAY [Concomitant]
     Indication: VITAMIN SUPPLEMENTATION
  6. PERCOCET [Concomitant]

REACTIONS (2)
  - Constipation [Recovered/Resolved]
  - Incorrect drug administration duration [Not Recovered/Not Resolved]
